FAERS Safety Report 6413186-4 (Version None)
Quarter: 2009Q4

REPORT INFORMATION
  Report Type: 
  Country: None (occurrence: None)
  Receive Date: 20091026
  Receipt Date: 20091013
  Transmission Date: 20100525
  Serious: Yes (Other)
  Sender: FDA-Public Use
  Company Number: PHHY2009JP41714

PATIENT
  Age: 60 Year
  Sex: Female

DRUGS (3)
  1. NEORAL [Suspect]
     Indication: SYSTEMIC LUPUS ERYTHEMATOSUS
     Dosage: 50 MG, DAILY
     Route: 048
     Dates: start: 20070301
  2. PREDNISOLONE [Suspect]
     Indication: SYSTEMIC LUPUS ERYTHEMATOSUS
     Dosage: 15 MG, DAILY
     Route: 048
     Dates: start: 20020701
  3. PREDNISOLONE [Suspect]
     Dosage: 40 MG, DAILY
     Route: 048

REACTIONS (2)
  - MENINGITIS TUBERCULOUS [None]
  - SYSTEMIC LUPUS ERYTHEMATOSUS [None]
